FAERS Safety Report 9531157 (Version 1)
Quarter: 2013Q3

REPORT INFORMATION
  Report Type: Spontaneous
  Country: US (occurrence: US)
  Receive Date: 20130918
  Receipt Date: 20130918
  Transmission Date: 20140515
  Serious: Yes (Other)
  Sender: FDA-Public Use
  Company Number: PHHY2013US102194

PATIENT
  Age: 42 Year
  Sex: Male

DRUGS (2)
  1. CLOZAPINE [Suspect]
     Dosage: 200 MG, PER DAY
  2. CLOZAPINE [Suspect]
     Dosage: 100 MG, PER DAY

REACTIONS (2)
  - Mania [Recovering/Resolving]
  - Obsessive-compulsive disorder [Recovering/Resolving]
